FAERS Safety Report 14559615 (Version 1)
Quarter: 2018Q1

REPORT INFORMATION
  Report Type: Report from Study
  Country: US (occurrence: US)
  Receive Date: 20180221
  Receipt Date: 20180221
  Transmission Date: 20180509
  Serious: Yes (Hospitalization, Other)
  Sender: FDA-Public Use
  Company Number: US-SHIRE-US201805759

PATIENT
  Age: 45 Year
  Sex: Male

DRUGS (1)
  1. GATTEX [Suspect]
     Active Substance: TEDUGLUTIDE\WATER
     Indication: SHORT-BOWEL SYNDROME
     Dosage: 4.036 MG, 1X/DAY:QD
     Route: 058
     Dates: start: 20171212

REACTIONS (8)
  - Vomiting [Unknown]
  - Injection site pain [Unknown]
  - Device related infection [Unknown]
  - Pyrexia [Unknown]
  - Oedema peripheral [Unknown]
  - Nausea [Unknown]
  - Muscle spasms [Unknown]
  - Decreased appetite [Unknown]

NARRATIVE: CASE EVENT DATE: 20180209
